FAERS Safety Report 21980536 (Version 1)
Quarter: 2023Q1

REPORT INFORMATION
  Report Type: Report from Study
  Country: GB (occurrence: GB)
  Receive Date: 20230211
  Receipt Date: 20230211
  Transmission Date: 20230417
  Serious: Yes (Other)
  Sender: FDA-Public Use
  Company Number: GB-BAYER-2023A016118

PATIENT
  Age: 64 Year
  Sex: Male

DRUGS (1)
  1. VENTAVIS [Suspect]
     Active Substance: ILOPROST
     Indication: Pulmonary arterial hypertension
     Dosage: UNK
     Route: 055
     Dates: start: 20210303

REACTIONS (2)
  - Cerebrovascular accident [Unknown]
  - Fall [Unknown]

NARRATIVE: CASE EVENT DATE: 20230101
